FAERS Safety Report 6502549-4 (Version None)
Quarter: 2009Q4

REPORT INFORMATION
  Report Type: 
  Country: None (occurrence: None)
  Receive Date: 20091217
  Receipt Date: 20091204
  Transmission Date: 20100525
  Serious: Yes (Hospitalization)
  Sender: FDA-Public Use
  Company Number: GB-RANBAXY-2008RR-17465

PATIENT
  Sex: Male

DRUGS (4)
  1. CODEINE [Suspect]
  2. NUROFEN [Suspect]
  3. SUBUTEX [Suspect]
     Dosage: 8 MG, UNK
     Dates: start: 20080602
  4. ETHANOL [Suspect]

REACTIONS (2)
  - SUBSTANCE ABUSE [None]
  - SYNCOPE [None]
